FAERS Safety Report 14085750 (Version 5)
Quarter: 2018Q2

REPORT INFORMATION
  Report Type: Report from Study
  Country: PA (occurrence: PA)
  Receive Date: 20171013
  Receipt Date: 20180413
  Transmission Date: 20180711
  Serious: Yes (Life-Threatening)
  Sender: FDA-Public Use
  Company Number: PHHY2017PA108194

PATIENT
  Sex: Female
  Weight: 61 kg

DRUGS (7)
  1. AFINITOR [Suspect]
     Active Substance: EVEROLIMUS
     Indication: BREAST CANCER
     Dosage: 10 MG, QD
     Route: 048
     Dates: end: 20180117
  2. AFINITOR [Suspect]
     Active Substance: EVEROLIMUS
     Indication: BREAST MASS
     Dosage: 10 MG, QD
     Route: 048
     Dates: end: 20180313
  3. SINVASTATINA [Concomitant]
     Active Substance: SIMVASTATIN
     Indication: PRODUCT USED FOR UNKNOWN INDICATION
     Dosage: 4 DF, EVERY NIGHT
  4. TAMOXIFEN [Concomitant]
     Active Substance: TAMOXIFEN
     Indication: PRODUCT USED FOR UNKNOWN INDICATION
     Dosage: 25 MG, QD
     Route: 048
  5. NATRILIX [Concomitant]
     Active Substance: INDAPAMIDE
     Indication: PRODUCT USED FOR UNKNOWN INDICATION
     Dosage: 1.5 MG, UNK
     Route: 048
  6. LEVOTHYROXINE. [Concomitant]
     Active Substance: LEVOTHYROXINE
     Indication: PRODUCT USED FOR UNKNOWN INDICATION
     Dosage: 50 UG, QD
     Route: 048
  7. EXEMESTANE. [Concomitant]
     Active Substance: EXEMESTANE
     Indication: BREAST MASS
     Route: 065

REACTIONS (38)
  - Feeding disorder [Recovered/Resolved]
  - Blood triglycerides increased [Unknown]
  - Rash generalised [Recovering/Resolving]
  - Drug dispensing error [Unknown]
  - Malaise [Unknown]
  - Inappropriate schedule of drug administration [Unknown]
  - Epigastric discomfort [Recovered/Resolved]
  - Oral discomfort [Recovered/Resolved]
  - Contusion [Unknown]
  - Weight decreased [Recovering/Resolving]
  - Nasopharyngitis [Unknown]
  - Skin irritation [Unknown]
  - Peripheral vascular disorder [Unknown]
  - Nausea [Recovered/Resolved]
  - Arthralgia [Recovering/Resolving]
  - Joint swelling [Unknown]
  - Erythema [Recovering/Resolving]
  - Rash [Recovered/Resolved]
  - Blood triglycerides increased [Recovered/Resolved]
  - Pruritus [Recovering/Resolving]
  - Rash [Unknown]
  - Peripheral swelling [Recovering/Resolving]
  - Haemoglobin decreased [Unknown]
  - Oedema [Unknown]
  - Oral pain [Recovered/Resolved]
  - Feeling abnormal [Unknown]
  - Speech disorder [Unknown]
  - Dysstasia [Unknown]
  - Pain in extremity [Unknown]
  - Dizziness [Unknown]
  - Food intolerance [Unknown]
  - Glossitis [Recovering/Resolving]
  - Glossodynia [Recovered/Resolved]
  - Fatigue [Unknown]
  - Acne [Unknown]
  - Stomatitis [Unknown]
  - Haemoglobin decreased [Recovered/Resolved]
  - Blood cholesterol increased [Unknown]
